FAERS Safety Report 6220199-4 (Version None)
Quarter: 2009Q2

REPORT INFORMATION
  Report Type: 
  Country: None (occurrence: None)
  Receive Date: 20090609
  Receipt Date: 20090601
  Transmission Date: 20091009
  Serious: Yes (Other)
  Sender: FDA-Public Use
  Company Number: US-ABBOTT-09P-163-0577236-00

PATIENT
  Sex: Female
  Weight: 77.18 kg

DRUGS (1)
  1. VICODIN ES [Suspect]
     Indication: DRUG USE FOR UNKNOWN INDICATION
     Dosage: 750/7.5MG
     Route: 048

REACTIONS (3)
  - INTENTIONAL OVERDOSE [None]
  - OVERDOSE [None]
  - PRESCRIPTION FORM TAMPERING [None]
